FAERS Safety Report 15663855 (Version 1)
Quarter: 2018Q4

REPORT INFORMATION
  Report Type: Spontaneous
  Country: US (occurrence: US)
  Receive Date: 20181128
  Receipt Date: 20181128
  Transmission Date: 20190205
  Serious: No
  Sender: FDA-Public Use
  Company Number: PHEH2018US049519

PATIENT
  Sex: Female

DRUGS (3)
  1. VIOXX [Suspect]
     Active Substance: ROFECOXIB
     Indication: ANKLE FRACTURE
     Dosage: UNK
     Route: 065
     Dates: start: 2001
  2. DIOVAN [Suspect]
     Active Substance: VALSARTAN
     Indication: HYPERTENSION
     Dosage: 80 MG, QD
     Route: 048
     Dates: start: 2001
  3. VALSARTAN. [Suspect]
     Active Substance: VALSARTAN
     Indication: PRODUCT USED FOR UNKNOWN INDICATION
     Dosage: 80 MG, QD
     Route: 048

REACTIONS (1)
  - Blood pressure increased [Unknown]
